FAERS Safety Report 10584027 (Version 1)
Quarter: 2014Q4

REPORT INFORMATION
  Report Type: Spontaneous
  Country: US (occurrence: None)
  Receive Date: 20141113
  Receipt Date: 20141113
  Transmission Date: 20150529
  Serious: Yes (Disabling)
  Sender: FDA-Public Use
  Company Number: None

PATIENT
  Age: 65 Year
  Sex: Female
  Weight: 67.13 kg

DRUGS (3)
  1. CALCIUM CITRATE [Concomitant]
     Active Substance: CALCIUM CITRATE
  2. VITAMIN D [Concomitant]
     Active Substance: CHOLECALCIFEROL
  3. ALENDRONATE SODIUM TABLETS, USP, 70 MG MFR/LABEL SUN PH [Suspect]
     Active Substance: ALENDRONATE SODIUM
     Indication: OSTEOPOROSIS
     Dosage: 1 PILL  ONCE PER WEEK BY MOUTH
     Route: 048
     Dates: start: 20140201, end: 20140828

REACTIONS (2)
  - Osteonecrosis of jaw [None]
  - Gingival pain [None]

NARRATIVE: CASE EVENT DATE: 20140702
